FAERS Safety Report 16264037 (Version 5)
Quarter: 2019Q3

REPORT INFORMATION
  Report Type: Spontaneous
  Country: NL (occurrence: NL)
  Receive Date: 20190502
  Receipt Date: 20190926
  Transmission Date: 20191004
  Serious: Yes (Other)
  Sender: FDA-Public Use
  Company Number: NL-009507513-1904NLD010657

PATIENT
  Age: 68 Year
  Sex: Male

DRUGS (6)
  1. SIMVASTATIN. [Suspect]
     Active Substance: SIMVASTATIN
     Dosage: UNK
     Route: 065
  2. BUMETANIDE. [Concomitant]
     Active Substance: BUMETANIDE
     Dosage: SINCE A FEW MONTHS
  3. ALFACALCIDOL [Interacting]
     Active Substance: ALFACALCIDOL
     Dosage: UNK
  4. IMATINIB MESYLATE. [Interacting]
     Active Substance: IMATINIB MESYLATE
     Dosage: 20 MILLIGRAM
  5. IMATINIB MESYLATE. [Interacting]
     Active Substance: IMATINIB MESYLATE
     Indication: CHRONIC MYELOID LEUKAEMIA (IN REMISSION)
     Dosage: UNK
  6. CLOPIDOGREL [Interacting]
     Active Substance: CLOPIDOGREL BISULFATE
     Dosage: SINCE A FEW MONTHS

REACTIONS (3)
  - Drug interaction [Recovered/Resolved]
  - Interstitial lung disease [Recovered/Resolved]
  - Organising pneumonia [Recovered/Resolved]
